FAERS Safety Report 16812322 (Version 2)
Quarter: 2019Q4

REPORT INFORMATION
  Report Type: Spontaneous
  Country: FR (occurrence: FR)
  Receive Date: 20190916
  Receipt Date: 20191213
  Transmission Date: 20200122
  Serious: Yes (Death)
  Sender: FDA-Public Use
  Company Number: FR-MYLANLABS-2019M1086622

PATIENT
  Age: 57 Year
  Sex: Female
  Weight: 60 kg

DRUGS (6)
  1. TIAPRIDE [Suspect]
     Active Substance: TIAPRIDE
     Indication: PRODUCT USED FOR UNKNOWN INDICATION
     Dosage: UNK
     Route: 048
  2. PRAZEPAM [Suspect]
     Active Substance: PRAZEPAM
     Indication: BURNOUT SYNDROME
     Dosage: 3 DOSAGE FORM, QD
     Route: 048
     Dates: start: 201812
  3. DECONTRACTYL                       /01379001/ [Suspect]
     Active Substance: MEPHENESIN\METHYL NICOTINATE
     Indication: NECK PAIN
     Dosage: UNK
     Route: 048
     Dates: start: 2012
  4. TERCIAN                            /00759301/ [Concomitant]
     Active Substance: CYAMEMAZINE
     Indication: BURNOUT SYNDROME
     Dosage: 2 DOSAGE FORM, QD
     Route: 048
     Dates: start: 201812
  5. LORMETAZEPAM [Concomitant]
     Active Substance: LORMETAZEPAM
     Indication: BURNOUT SYNDROME
     Dosage: 1 DOSAGE FORM, QD
     Route: 048
     Dates: start: 201812
  6. VENLAFAXINE [Suspect]
     Active Substance: VENLAFAXINE HYDROCHLORIDE
     Indication: BURNOUT SYNDROME
     Dosage: 3 DOSAGE FORM, QD
     Route: 048
     Dates: start: 201812

REACTIONS (4)
  - Respiratory depression [Fatal]
  - Poisoning deliberate [Fatal]
  - Aspiration [Fatal]
  - Depressed level of consciousness [Fatal]
